FAERS Safety Report 7152590-6 (Version None)
Quarter: 2010Q4

REPORT INFORMATION
  Report Type: 
  Country: None (occurrence: None)
  Receive Date: 20101213
  Receipt Date: 20101202
  Transmission Date: 20110411
  Serious: No
  Sender: FDA-Public Use
  Company Number: KR-JNJFOC-20101108229

PATIENT
  Sex: Female

DRUGS (2)
  1. DURAGESIC-100 [Suspect]
     Indication: PAIN MANAGEMENT
     Route: 062
  2. DURAGESIC-100 [Suspect]
     Route: 062

REACTIONS (5)
  - CONSTIPATION [None]
  - DIZZINESS [None]
  - DRUG ADMINISTRATION ERROR [None]
  - DRY MOUTH [None]
  - VOMITING [None]
